FAERS Safety Report 7674669-2 (Version None)
Quarter: 2011Q3

REPORT INFORMATION
  Report Type: 
  Country: None (occurrence: None)
  Receive Date: 20110810
  Receipt Date: 20110726
  Transmission Date: 20111222
  Serious: Yes (Hospitalization)
  Sender: FDA-Public Use
  Company Number: US-GLAXOSMITHKLINE-A0788557A

PATIENT
  Age: 59 Year
  Sex: Female
  Weight: 76.8 kg

DRUGS (1)
  1. AVANDIA [Suspect]
     Indication: TYPE 2 DIABETES MELLITUS
     Dosage: 4MG PER DAY
     Route: 048
     Dates: start: 20051130, end: 20070820

REACTIONS (2)
  - CARDIAC FAILURE CONGESTIVE [None]
  - ARTERIOSCLEROSIS CORONARY ARTERY [None]
